FAERS Safety Report 9308718 (Version 1)
Quarter: 2013Q2

REPORT INFORMATION
  Report Type: Spontaneous
  Country: JP (occurrence: JP)
  Receive Date: 20130524
  Receipt Date: 20130524
  Transmission Date: 20140414
  Serious: Yes (Death, Hospitalization, Other)
  Sender: FDA-Public Use
  Company Number: PHHY2013JP047681

PATIENT
  Age: 45 Year
  Sex: Female

DRUGS (9)
  1. ETOPOSIDE SANDOZ [Suspect]
     Indication: SMALL CELL CARCINOMA OF THE CERVIX
     Dosage: 100 MG/M2, DAY1 TO 3
  2. ETOPOSIDE SANDOZ [Suspect]
     Indication: LUNG ADENOCARCINOMA
  3. ETOPOSIDE SANDOZ [Suspect]
     Indication: BREAST CANCER
  4. CISPLATIN [Suspect]
     Indication: SMALL CELL CARCINOMA OF THE CERVIX
     Dosage: 80 MG/M2, DAY1, EVERY 21 DAYS
  5. CISPLATIN [Suspect]
     Indication: LUNG ADENOCARCINOMA
  6. CISPLATIN [Suspect]
     Indication: BREAST CANCER
  7. IRINOTECAN [Suspect]
     Indication: SMALL CELL CARCINOMA OF THE CERVIX
  8. IRINOTECAN [Suspect]
     Indication: LUNG ADENOCARCINOMA
  9. IRINOTECAN [Suspect]
     Indication: BREAST CANCER

REACTIONS (10)
  - Pancreatic carcinoma metastatic [Fatal]
  - Metastases to adrenals [Fatal]
  - Jaundice cholestatic [Unknown]
  - Ureteral disorder [Unknown]
  - Renal impairment [Not Recovered/Not Resolved]
  - Hydronephrosis [Unknown]
  - Neutropenia [Unknown]
  - Disease recurrence [Unknown]
  - Malaise [Unknown]
  - Drug ineffective [Unknown]
